FAERS Safety Report 5152212-X (Version None)
Quarter: 2006Q4

REPORT INFORMATION
  Report Type: 
  Country: None (occurrence: None)
  Receive Date: 20061116
  Receipt Date: 20060922
  Transmission Date: 20070319
  Serious: Yes (Other)
  Sender: FDA-Public Use
  Company Number: US-KINGPHARMUSA00001-K200601214

PATIENT
  Sex: Female

DRUGS (3)
  1. ALTACE [Suspect]
     Route: 048
  2. ALTACE [Suspect]
     Route: 048
     Dates: start: 20060901
  3. BETA BLOCKING AGENTS [Suspect]

REACTIONS (2)
  - NERVOUS SYSTEM DISORDER [None]
  - SPEECH DISORDER [None]
